FAERS Safety Report 15171487 (Version 1)
Quarter: 2018Q3

REPORT INFORMATION
  Report Type: Spontaneous
  Country: DE (occurrence: DE)
  Receive Date: 20180720
  Receipt Date: 20180720
  Transmission Date: 20181010
  Serious: Yes (Other)
  Sender: FDA-Public Use
  Company Number: DE-BRACCO-2018DE03786

PATIENT
  Sex: Male

DRUGS (1)
  1. SOLUTRAST [Suspect]
     Active Substance: IOPAMIDOL
     Indication: SPINAL MYELOGRAM
     Dosage: UNK, SINGLE
     Route: 037
     Dates: start: 201803, end: 201803

REACTIONS (6)
  - Paralysis [Not Recovered/Not Resolved]
  - Arachnoiditis [Not Recovered/Not Resolved]
  - Pain in extremity [Not Recovered/Not Resolved]
  - Burning sensation [Not Recovered/Not Resolved]
  - Lumbosacral radiculopathy [Not Recovered/Not Resolved]
  - Back pain [Not Recovered/Not Resolved]

NARRATIVE: CASE EVENT DATE: 2018
